FAERS Safety Report 11890108 (Version 4)
Quarter: 2016Q3

REPORT INFORMATION
  Report Type: Spontaneous
  Country: JP (occurrence: JP)
  Receive Date: 20160105
  Receipt Date: 20160812
  Transmission Date: 20161109
  Serious: Yes (Other)
  Sender: FDA-Public Use
  Company Number: JP-REGENERON PHARMACEUTICALS, INC.-2015-15250

PATIENT

DRUGS (4)
  1. EYLEA [Suspect]
     Active Substance: AFLIBERCEPT
     Indication: POLYPOIDAL CHOROIDAL VASCULOPATHY
     Dosage: 3 TIMES A MONTH (TOTAL 9 DOSES)
     Route: 031
     Dates: start: 201401
  2. EYLEA [Suspect]
     Active Substance: AFLIBERCEPT
     Dosage: Q3MON
     Route: 031
  3. EYLEA [Suspect]
     Active Substance: AFLIBERCEPT
     Dosage: Q2WK
     Route: 031
     Dates: start: 201402
  4. EYLEA [Suspect]
     Active Substance: AFLIBERCEPT
     Dosage: UNK

REACTIONS (1)
  - Retinal degeneration [Unknown]

NARRATIVE: CASE EVENT DATE: 201404
